FAERS Safety Report 23519750 (Version 3)
Quarter: 2024Q1

REPORT INFORMATION
  Report Type: Spontaneous
  Country: US (occurrence: US)
  Receive Date: 20240213
  Receipt Date: 20240308
  Transmission Date: 20240410
  Serious: Yes (Other)
  Sender: FDA-Public Use
  Company Number: US-BRISTOL-MYERS SQUIBB COMPANY-2024-018202

PATIENT
  Age: 87 Year
  Sex: Male

DRUGS (1)
  1. REVLIMID [Suspect]
     Active Substance: LENALIDOMIDE
     Indication: Plasma cell myeloma
     Dosage: FREQUENCY: TAKE 1 CAPSULE BY MOUTH ONCE DAILY ON DAYS 1-21 EVERY 28 DAYS
     Route: 048
     Dates: start: 20240201

REACTIONS (8)
  - Neuropathy peripheral [Unknown]
  - Hypotension [Unknown]
  - Pain in extremity [Unknown]
  - Peripheral swelling [Unknown]
  - Diarrhoea [Unknown]
  - Hypervolaemia [Unknown]
  - Product dose omission issue [Unknown]
  - Full blood count abnormal [Unknown]
